FAERS Safety Report 23929631 (Version 1)
Quarter: 2024Q2

REPORT INFORMATION
  Report Type: Spontaneous
  Country: US (occurrence: US)
  Receive Date: 20240601
  Receipt Date: 20240601
  Transmission Date: 20240715
  Serious: No
  Sender: FDA-Public Use
  Company Number: US-RADIUS HEALTH INC.-2024US002759

PATIENT
  Sex: Female
  Weight: 63.991 kg

DRUGS (1)
  1. TYMLOS [Suspect]
     Active Substance: ABALOPARATIDE
     Indication: Senile osteoporosis
     Dosage: 80 MICROGRAM, QD
     Route: 058
     Dates: start: 20240226

REACTIONS (5)
  - Erythema [Unknown]
  - Skin warm [Unknown]
  - Heart rate increased [Recovering/Resolving]
  - Back pain [Unknown]
  - Muscle spasms [Unknown]
